FAERS Safety Report 5028563-6 (Version None)
Quarter: 2006Q2

REPORT INFORMATION
  Report Type: 
  Country: None (occurrence: None)
  Receive Date: 20060616
  Receipt Date: 20060616
  Transmission Date: 20061013
  Serious: Yes (Other)
  Sender: FDA-Public Use
  Company Number: None

PATIENT
  Sex: Female
  Weight: 58.9676 kg

DRUGS (1)
  1. ADVAIR DISKUS 250/50 [Suspect]
     Indication: ASTHMA
     Dosage: 1 BLISTER    2 TIMES A DAY  PO
     Route: 048
     Dates: end: 20050101

REACTIONS (2)
  - DRUG INEFFECTIVE [None]
  - OSTEONECROSIS [None]
